FAERS Safety Report 6389032-4 (Version None)
Quarter: 2009Q4

REPORT INFORMATION
  Report Type: 
  Country: None (occurrence: None)
  Receive Date: 20091001
  Receipt Date: 20090922
  Transmission Date: 20100525
  Serious: Yes (Other)
  Sender: FDA-Public Use
  Company Number: ADR30032009

PATIENT
  Age: 63 Year
  Sex: Male

DRUGS (3)
  1. RAMIPRIL [Suspect]
     Indication: PROPHYLAXIS
     Dosage: INITIALLY 2.5 MG, 1/1 DAYS (FOR 27 DAY) THEN 5 MG, 1/1 DAYS (21 DAYS)
     Route: 048
     Dates: start: 20070301, end: 20070322
  2. ATORVASTATIN [Concomitant]
  3. CANDESARTAN CILEXETIL [Concomitant]

REACTIONS (3)
  - DIPLOPIA [None]
  - DISTURBANCE IN ATTENTION [None]
  - IMPAIRED DRIVING ABILITY [None]
